FAERS Safety Report 16790183 (Version 3)
Quarter: 2019Q4

REPORT INFORMATION
  Report Type: Spontaneous
  Country: JP (occurrence: JP)
  Receive Date: 20190910
  Receipt Date: 20191101
  Transmission Date: 20200122
  Serious: Yes (Other)
  Sender: FDA-Public Use
  Company Number: JP-JNJFOC-20190219166

PATIENT
  Age: 74 Year
  Sex: Female
  Weight: 38.7 kg

DRUGS (2)
  1. BROTIZOLAM [Concomitant]
     Active Substance: BROTIZOLAM
     Route: 048
  2. YONDELIS [Suspect]
     Active Substance: TRABECTEDIN
     Indication: LIPOSARCOMA
     Dosage: CYCLE 1-7
     Route: 041
     Dates: start: 20190117, end: 20190725

REACTIONS (3)
  - Neutrophil count decreased [Unknown]
  - Implant site ulcer [Recovering/Resolving]
  - Infusion site extravasation [Recovering/Resolving]

NARRATIVE: CASE EVENT DATE: 20190129
